FAERS Safety Report 9924768 (Version 1)
Quarter: 2014Q1

REPORT INFORMATION
  Report Type: Report from Study
  Country: CA (occurrence: CA)
  Receive Date: 20140226
  Receipt Date: 20140226
  Transmission Date: 20141002
  Serious: Yes (Other)
  Sender: FDA-Public Use
  Company Number: CA-JNJFOC-20140213635

PATIENT
  Sex: Male
  Weight: 78 kg

DRUGS (7)
  1. REMICADE [Suspect]
     Indication: CROHN^S DISEASE
     Dosage: INFUSION NO 6
     Route: 042
     Dates: start: 20140219
  2. REMICADE [Suspect]
     Indication: CROHN^S DISEASE
     Route: 042
     Dates: start: 20130725
  3. ACETAMINOPHEN [Concomitant]
     Indication: PREMEDICATION
     Route: 048
  4. IMURAN [Concomitant]
     Route: 048
  5. VITAMIN D [Concomitant]
     Route: 065
  6. DIPHENHYDRAMINE HCL [Concomitant]
     Indication: PREMEDICATION
     Route: 042
  7. HYDROCORTISONE [Concomitant]
     Indication: PREMEDICATION
     Route: 042

REACTIONS (1)
  - Peyronie^s disease [Not Recovered/Not Resolved]
